FAERS Safety Report 24310389 (Version 1)
Quarter: 2024Q3

REPORT INFORMATION
  Report Type: Spontaneous
  Country: US (occurrence: US)
  Receive Date: 20240912
  Receipt Date: 20240912
  Transmission Date: 20241016
  Serious: No
  Sender: INDOCO
  Company Number: US-INDOCO-IND-2024-US-SPO-00081

PATIENT
  Sex: Female

DRUGS (1)
  1. DORZOLAMIDE HYDROCHLORIDE\TIMOLOL MALEATE [Suspect]
     Active Substance: DORZOLAMIDE HYDROCHLORIDE\TIMOLOL MALEATE
     Indication: Product used for unknown indication
     Dosage: CONSUMER USES DROPS IN THE EVENING AND THE MORNING
     Route: 047

REACTIONS (3)
  - Eyelid margin crusting [Unknown]
  - Product residue present [Unknown]
  - Product quality issue [Unknown]
